FAERS Safety Report 16881786 (Version 5)
Quarter: 2023Q2

REPORT INFORMATION
  Report Type: Report from Study
  Country: GB (occurrence: GB)
  Receive Date: 20191003
  Receipt Date: 20230619
  Transmission Date: 20230722
  Serious: Yes (Hospitalization, Other)
  Sender: FDA-Public Use
  Company Number: GB-ABBVIE-19P-167-2947152-00

PATIENT
  Age: 15 Year
  Sex: Male
  Weight: 49 kg

DRUGS (21)
  1. HUMIRA [Suspect]
     Active Substance: ADALIMUMAB
     Indication: Crohn^s disease
     Route: 058
     Dates: start: 20140428, end: 20161122
  2. HUMIRA [Suspect]
     Active Substance: ADALIMUMAB
     Route: 058
     Dates: start: 20171020, end: 20171203
  3. HUMIRA [Suspect]
     Active Substance: ADALIMUMAB
     Route: 058
     Dates: start: 20171204, end: 20181022
  4. HUMIRA [Suspect]
     Active Substance: ADALIMUMAB
     Route: 058
     Dates: start: 20181023, end: 20190617
  5. HUMIRA [Suspect]
     Active Substance: ADALIMUMAB
     Route: 058
     Dates: start: 20161123, end: 20171020
  6. AZATHIOPRINE [Suspect]
     Active Substance: AZATHIOPRINE
     Indication: Crohn^s disease
     Route: 048
     Dates: start: 20161123, end: 20190624
  7. AZATHIOPRINE [Suspect]
     Active Substance: AZATHIOPRINE
     Indication: Crohn^s disease
     Route: 048
     Dates: start: 20190718
  8. OMEPRAZOLE [Concomitant]
     Active Substance: OMEPRAZOLE
     Indication: Crohn^s disease
     Route: 048
     Dates: start: 20100816, end: 20190624
  9. OMEPRAZOLE [Concomitant]
     Active Substance: OMEPRAZOLE
     Indication: Crohn^s disease
     Route: 048
     Dates: start: 20190718
  10. OLOPATADINE [Concomitant]
     Active Substance: OLOPATADINE
     Indication: Eye swelling
     Dosage: DOSE: 1 MG/ML GTT
     Route: 047
     Dates: start: 201711
  11. CETIRIZINE [Concomitant]
     Active Substance: CETIRIZINE HYDROCHLORIDE
     Indication: Seasonal allergy
     Route: 048
     Dates: start: 20170523, end: 20180311
  12. CETIRIZINE [Concomitant]
     Active Substance: CETIRIZINE HYDROCHLORIDE
     Indication: Seasonal allergy
     Dosage: TIME INTERVAL: AS NECESSARY
     Route: 048
     Dates: start: 20190312, end: 20190624
  13. CETIRIZINE [Concomitant]
     Active Substance: CETIRIZINE HYDROCHLORIDE
     Indication: Seasonal allergy
     Dosage: TIME INTERVAL: AS NECESSARY
     Route: 048
     Dates: start: 20190701
  14. HYLO TEAR [Concomitant]
     Indication: Dry eye
     Route: 047
     Dates: start: 20171222
  15. FUSCIDIC ACID [Concomitant]
     Indication: Eye pain
     Route: 047
     Dates: start: 20180111
  16. BETNESOL [Concomitant]
     Indication: Eye inflammation
     Route: 047
     Dates: start: 20180111
  17. CHLOROCRESOL [Concomitant]
     Active Substance: CHLOROCRESOL
     Indication: Dry skin
     Dosage: TIME INTERVAL: AS NECESSARY: DOSE: APPLY TO AFFECTED SKIN
     Route: 061
     Dates: start: 20171227
  18. HYDROCORTISONE [Concomitant]
     Active Substance: HYDROCORTISONE
     Indication: Eczema
     Route: 061
     Dates: start: 20180111
  19. PREDNISOLONE [Concomitant]
     Active Substance: PREDNISOLONE
     Indication: Crohn^s disease
     Route: 048
     Dates: start: 20181013
  20. ACYCLOVIR [Concomitant]
     Active Substance: ACYCLOVIR
     Indication: Oral herpes
     Route: 061
     Dates: start: 20180928
  21. HYDROCORTISONE\MICONAZOLE NITRATE [Concomitant]
     Active Substance: HYDROCORTISONE\MICONAZOLE NITRATE
     Indication: Ear pain
     Dosage: TIME INTERVAL: AS NECESSARY: APPLY TO AFFECTED AREA
     Route: 061
     Dates: start: 20171130

REACTIONS (1)
  - Ileal stenosis [Recovered/Resolved]

NARRATIVE: CASE EVENT DATE: 20190625
